FAERS Safety Report 5811255-0 (Version None)
Quarter: 2008Q3

REPORT INFORMATION
  Report Type: 
  Country: None (occurrence: None)
  Receive Date: 20080716
  Receipt Date: 20080708
  Transmission Date: 20090109
  Serious: Yes (Hospitalization)
  Sender: FDA-Public Use
  Company Number: PHHO2007DE14020

PATIENT
  Sex: Female
  Weight: 76 kg

DRUGS (4)
  1. NEORAL [Suspect]
     Indication: RENAL TRANSPLANT
     Dosage: 200MG DAILY
     Route: 048
     Dates: start: 20070401
  2. NEORAL [Suspect]
     Dosage: 150 MG / DAY
     Route: 048
     Dates: end: 20070529
  3. MYCOPHENOLATE MOFETIL [Suspect]
     Indication: RENAL TRANSPLANT
     Dosage: 2000MG DAILY
     Route: 048
     Dates: start: 20070401
  4. MYCOPHENOLATE MOFETIL [Suspect]
     Dosage: 1000 MG / DAY
     Route: 048

REACTIONS (14)
  - ASCITES [None]
  - ASTHENIA [None]
  - BLOOD CREATININE INCREASED [None]
  - C-REACTIVE PROTEIN INCREASED [None]
  - CHILLS [None]
  - COMPLICATIONS OF TRANSPLANTED KIDNEY [None]
  - CYTOMEGALOVIRUS INFECTION [None]
  - DYSPNOEA [None]
  - FATIGUE [None]
  - KLEBSIELLA INFECTION [None]
  - OEDEMA PERIPHERAL [None]
  - PYREXIA [None]
  - URETERAL STENT REMOVAL [None]
  - URINARY TRACT INFECTION [None]
